FAERS Safety Report 8321440 (Version 2)
Quarter: 2013Q1

REPORT INFORMATION
  Report Type: Report from Study
  Country: DE (occurrence: DE)
  Receive Date: 20120104
  Receipt Date: 20130301
  Transmission Date: 20140127
  Serious: Yes (Hospitalization)
  Sender: FDA-Public Use
  Company Number: DE-GLAXOSMITHKLINE-B0772678A

PATIENT
  Age: 42 Year
  Sex: Female
  Weight: 68 kg

DRUGS (10)
  1. LAPATINIB [Suspect]
     Indication: BREAST CANCER
     Dosage: 750MG PER DAY
     Route: 048
     Dates: start: 20111117
  2. PACLITAXEL [Suspect]
     Indication: BREAST CANCER
     Dosage: 80MGM2 WEEKLY
     Route: 042
     Dates: start: 20111117
  3. MYOCET [Suspect]
     Indication: BREAST CANCER
     Dosage: 20MGM2 WEEKLY
     Route: 042
     Dates: start: 20111117
  4. CARBOPLATIN [Suspect]
     Indication: BREAST CANCER
     Route: 042
     Dates: start: 20111117
  5. TRASTUZUMAB [Suspect]
     Indication: BREAST CANCER
     Dosage: 6MGK EVERY 3 WEEKS
     Route: 042
     Dates: start: 20111117
  6. TAVEGIL [Concomitant]
     Dates: start: 20111222, end: 20111222
  7. RANITIC [Concomitant]
     Dates: start: 20111222, end: 20111222
  8. ONDANSETRON [Concomitant]
     Dates: start: 20111222, end: 20111223
  9. DEXAMETHASONE [Concomitant]
     Dates: start: 20111222, end: 20111222
  10. LOPERAMID [Concomitant]
     Dosage: 12MG PER DAY
     Dates: start: 20111117, end: 20111224

REACTIONS (1)
  - Pain in extremity [Recovered/Resolved]
